FAERS Safety Report 4368864-8 (Version None)
Quarter: 2004Q2

REPORT INFORMATION
  Report Type: 
  Country: None (occurrence: None)
  Receive Date: 20040525
  Receipt Date: 20040518
  Transmission Date: 20050107
  Serious: Yes (Other)
  Sender: FDA-Public Use
  Company Number: 200403799

PATIENT
  Age: 11 Year
  Sex: Male
  Weight: 32.2054 kg

DRUGS (2)
  1. JUNIOR STRENGTH MOTRIN ORANGE CHEWABLE TABLETS [Suspect]
     Indication: HEADACHE
     Dosage: 250 MG, ONCE, PO
     Route: 048
     Dates: start: 20040516, end: 20040516
  2. TYLENOL [Concomitant]

REACTIONS (9)
  - DIARRHOEA [None]
  - DRY MOUTH [None]
  - HEAD INJURY [None]
  - HEART RATE INCREASED [None]
  - LOSS OF CONSCIOUSNESS [None]
  - NAUSEA [None]
  - SYNCOPE [None]
  - TREMOR [None]
  - VOMITING [None]
